FAERS Safety Report 22718360 (Version 6)
Quarter: 2024Q2

REPORT INFORMATION
  Report Type: Spontaneous
  Country: US (occurrence: US)
  Receive Date: 20230718
  Receipt Date: 20240521
  Transmission Date: 20240716
  Serious: No
  Sender: FDA-Public Use
  Company Number: US-SA-SAC20230713001283

PATIENT
  Age: 10 Year
  Sex: Female

DRUGS (10)
  1. DUPIXENT [Suspect]
     Active Substance: DUPILUMAB
     Indication: Eczema
     Dosage: 400 MG, 1X
     Route: 058
  2. DUPIXENT [Suspect]
     Active Substance: DUPILUMAB
     Indication: Dermatitis atopic
     Dosage: 200 MG, QOW
     Route: 058
     Dates: start: 20230627
  3. DUPIXENT [Suspect]
     Active Substance: DUPILUMAB
     Indication: Dermatitis atopic
     Dosage: 300 MG, QOW
     Route: 058
     Dates: start: 20231227
  4. CETIRIZINE [Concomitant]
     Active Substance: CETIRIZINE HYDROCHLORIDE
     Dosage: UNK
  5. TYLENOL [Concomitant]
     Active Substance: ACETAMINOPHEN
     Dosage: UNK
  6. VITAMINS NOS [Concomitant]
     Active Substance: VITAMINS
     Dosage: UNK
  7. TRIAMCINOLONE [Concomitant]
     Active Substance: TRIAMCINOLONE
     Dosage: UNK
  8. KEFLEX [Concomitant]
     Active Substance: CEPHALEXIN
     Indication: Dermatitis atopic
     Dosage: 500 MG FOR 6 DAYS
  9. CHILDREN^S MULTIVITAMIN [Concomitant]
     Dosage: UNK
  10. ACETAMINOPHEN [Concomitant]
     Active Substance: ACETAMINOPHEN
     Indication: Migraine
     Dosage: UNK

REACTIONS (14)
  - Discomfort [Not Recovered/Not Resolved]
  - Restlessness [Not Recovered/Not Resolved]
  - Sleep disorder [Not Recovered/Not Resolved]
  - Urinary tract infection [Unknown]
  - Pain in extremity [Unknown]
  - Erythema [Not Recovered/Not Resolved]
  - Pruritus [Not Recovered/Not Resolved]
  - Injection site pain [Unknown]
  - Injection site bruising [Unknown]
  - Device malfunction [Unknown]
  - Rash [Not Recovered/Not Resolved]
  - Accidental exposure to product [Unknown]
  - Exposure via skin contact [Unknown]
  - Drug ineffective [Unknown]
